FAERS Safety Report 5454035-0 (Version None)
Quarter: 2007Q3

REPORT INFORMATION
  Report Type: 
  Country: None (occurrence: None)
  Receive Date: 20070917
  Receipt Date: 20070330
  Transmission Date: 20080115
  Serious: Yes (Other)
  Sender: FDA-Public Use
  Company Number: US-ASTRAZENECA-2006UW06099

PATIENT
  Age: 16008 Day
  Sex: Female
  Weight: 87.3 kg

DRUGS (2)
  1. SEROQUEL [Suspect]
     Dosage: 25 MG - 300 MG
     Route: 048
     Dates: start: 20020101
  2. COCAINE [Concomitant]

REACTIONS (2)
  - KETOACIDOSIS [None]
  - TYPE 2 DIABETES MELLITUS [None]
